FAERS Safety Report 23827354 (Version 3)
Quarter: 2024Q4

REPORT INFORMATION
  Report Type: Report from Study
  Country: GB (occurrence: GB)
  Receive Date: 20240507
  Receipt Date: 20241230
  Transmission Date: 20250115
  Serious: No
  Sender: SANDOZ
  Company Number: GB-SANDOZ-SDZ2024GB041254

PATIENT
  Sex: Female

DRUGS (2)
  1. HYRIMOZ [Suspect]
     Active Substance: ADALIMUMAB-ADAZ
     Indication: Psoriatic arthropathy
     Dosage: 40 MG EOW; PREVIOUS STRENGTH: 40/0.8 MG/ML
     Route: 058
     Dates: start: 20240402
  2. HYRIMOZ [Suspect]
     Active Substance: ADALIMUMAB-ADAZ
     Indication: Psoriatic arthropathy
     Dosage: 40 MG EOW; PREVIOUS STRENGTH: 40/0.8 MG/ML
     Route: 058
     Dates: start: 20240402

REACTIONS (6)
  - Malaise [Unknown]
  - Injection site rash [Recovering/Resolving]
  - Injection site erythema [Unknown]
  - Rash [Unknown]
  - Nausea [Recovered/Resolved]
  - Influenza [Unknown]
